FAERS Safety Report 19438207 (Version 2)
Quarter: 2021Q3

REPORT INFORMATION
  Report Type: Spontaneous
  Country: DE (occurrence: DE)
  Receive Date: 20210618
  Receipt Date: 20210712
  Transmission Date: 20211014
  Serious: Yes (Other)
  Sender: FDA-Public Use
  Company Number: DE-MYLANLABS-2021M1035179

PATIENT
  Age: 67 Year
  Sex: Female

DRUGS (24)
  1. HOLOXAN [Suspect]
     Active Substance: IFOSFAMIDE
     Indication: CENTRAL NERVOUS SYSTEM LYMPHOMA
     Dosage: CYCLICAL POLYCHEMOTHERAPY, CYCLE A, OVER 1 HOUR PER INFUSION (DAY 2, 3, 4 AND 5)
     Route: 042
  2. VINDESINE [Suspect]
     Active Substance: VINDESINE
     Indication: CENTRAL NERVOUS SYSTEM LYMPHOMA
     Dosage: 5 MG ON DAY 1 IN CYCLE C
     Route: 042
  3. METHOTREXATE. [Suspect]
     Active Substance: METHOTREXATE
     Indication: CENTRAL NERVOUS SYSTEM LYMPHOMA
     Dosage: 3.5 G/M2 ON DAY 1 IN CYCLE A2 AND B2
     Route: 042
  4. CYTARABINE. [Suspect]
     Active Substance: CYTARABINE
     Dosage: CYCLE C, DAY 7
     Route: 050
  5. TROPISETRON [Concomitant]
     Active Substance: TROPISETRON
     Indication: PROPHYLAXIS OF NAUSEA AND VOMITING
     Dosage: UNK
  6. CYTARABINE. [Suspect]
     Active Substance: CYTARABINE
     Dosage: BSA, CYCLE C, DAY 1 AND 2
     Route: 042
  7. VINCRISTINE SULFATE. [Suspect]
     Active Substance: VINCRISTINE SULFATE
     Indication: CENTRAL NERVOUS SYSTEM LYMPHOMA
     Dosage: 2 MG ON DY 1 IN CYCLE A1 AND B1
     Route: 042
  8. VINCRISTINE SULFATE. [Suspect]
     Active Substance: VINCRISTINE SULFATE
     Dosage: CYCLE A, DAY 1
     Route: 042
  9. DEXAMETHASONE. [Suspect]
     Active Substance: DEXAMETHASONE
     Indication: CENTRAL NERVOUS SYSTEM LYMPHOMA
     Dosage: 10 MILLIGRAM/SQ. METER, CYCLE (ON DAY 1?5 IN CYCLE A AND B)
     Route: 048
  10. METHOTREXATE. [Suspect]
     Active Substance: METHOTREXATE
     Dosage: CYCLE A (DAY 1, 2, 3, 4), CYCLE C (DAY 3, 4, 5 AND 6)
     Route: 050
  11. MESNA. [Concomitant]
     Active Substance: MESNA
     Indication: PROPHYLAXIS
     Dosage: UNK
  12. DEXAMETHASONE. [Suspect]
     Active Substance: DEXAMETHASONE
     Dosage: 20 MILLIGRAM/SQ. METER, CYCLE (ON DAY 1?5 IN CYCLE C)
     Route: 048
  13. CYTARABINE. [Suspect]
     Active Substance: CYTARABINE
     Indication: CENTRAL NERVOUS SYSTEM LYMPHOMA
     Dosage: 3 G/M2 OVER 3 HR VIA INFUSION ON DAY 1 AND 2 IN CYCLE C
     Route: 042
  14. METHOTREXATE. [Suspect]
     Active Substance: METHOTREXATE
     Dosage: 5 G/M2 ON DAY 1 IN CYCLE A1 AND B1
     Route: 042
  15. CYTARABINE. [Suspect]
     Active Substance: CYTARABINE
     Dosage: 30 MG ON DAY 5 IN CYCLE A AND B
     Route: 050
  16. CYCLOPHOSPHAMIDE. [Suspect]
     Active Substance: CYCLOPHOSPHAMIDE
     Indication: CENTRAL NERVOUS SYSTEM LYMPHOMA
     Dosage: 200 MILLIGRAM/SQ. METER, CYCLE (OVER 1 HR VIA INFUSION ON DAY 2?5 IN CYCLE B1)
     Route: 042
  17. IFOSFAMIDE. [Suspect]
     Active Substance: IFOSFAMIDE
     Indication: CENTRAL NERVOUS SYSTEM LYMPHOMA
     Dosage: 800 MG/M2 OVER 1 HR VIA INFUSION ON DAY 2?5 IN CYCLE A1
     Route: 042
  18. ENDOXAN                            /00021101/ [Suspect]
     Active Substance: CYCLOPHOSPHAMIDE
     Indication: CENTRAL NERVOUS SYSTEM LYMPHOMA
     Dosage: CYCLE B CYCLICAL POLYCHEMOTHERAPY (DAY 2, 3, 4 AND 5)
     Route: 042
  19. METHOTREXATE. [Suspect]
     Active Substance: METHOTREXATE
     Dosage: 3 MG ON DAY 1?4 IN CYCLE A AND B, ON DAY 3?6 IN CYCLE C
  20. ONDANSETRON [Concomitant]
     Active Substance: ONDANSETRON
     Indication: PROPHYLAXIS OF NAUSEA AND VOMITING
     Dosage: UNK
  21. METHOTREXATE. [Suspect]
     Active Substance: METHOTREXATE
     Dosage: CYCLE A, DAY 1; 0.5 G/M2 BSA OVER 30 MIN AND 4.5 G/M2 BSA OVER 23.5 HOURS PER INFUSION UNK
     Route: 042
  22. CYTARABINE. [Suspect]
     Active Substance: CYTARABINE
     Dosage: 30 MG ON DAY 5 IN CYCLE A AND B
  23. PREDNISOLONE. [Suspect]
     Active Substance: PREDNISOLONE
     Indication: CENTRAL NERVOUS SYSTEM LYMPHOMA
     Dosage: 2.5 MILLIGRAM, CYCLE (DAY1?4 IN CYCLE A AND B, ON DAY 3?6 IN CYCLE C )
  24. PREDNISOLONE. [Suspect]
     Active Substance: PREDNISOLONE
     Dosage: CYCLE B, C DAY 1, 2, 3 AND 4
     Route: 050

REACTIONS (6)
  - Alopecia [Unknown]
  - Pulmonary oedema [Unknown]
  - Rash [Unknown]
  - Infection [Unknown]
  - Thrombocytopenia [Unknown]
  - Leukopenia [Unknown]
